FAERS Safety Report 5840541-3 (Version None)
Quarter: 2008Q3

REPORT INFORMATION
  Report Type: 
  Country: None (occurrence: None)
  Receive Date: 20080811
  Receipt Date: 20080801
  Transmission Date: 20090109
  Serious: Yes (Hospitalization)
  Sender: FDA-Public Use
  Company Number: JP-ASTRAZENECA-2008AP04053

PATIENT
  Age: 70 Year
  Sex: Female
  Weight: 55 kg

DRUGS (12)
  1. CRESTOR [Suspect]
     Indication: HYPERLIPIDAEMIA
     Route: 048
     Dates: start: 20070515, end: 20080508
  2. LEVOTHYROXINE SODIUM [Concomitant]
     Indication: HYPOTHYROIDISM
     Route: 048
  3. ASPIRIN [Concomitant]
     Indication: CEREBRAL INFARCTION
     Route: 048
  4. AMLODIPINE BESYLATE [Concomitant]
     Indication: HYPERTENSION
     Route: 048
  5. AMOBAN [Concomitant]
     Indication: INSOMNIA
     Route: 048
  6. RIZE [Concomitant]
     Indication: DEPRESSIVE SYMPTOM
     Route: 048
  7. SLOW-K [Concomitant]
     Indication: HYPOKALAEMIA
     Route: 048
  8. NIKORANMART [Concomitant]
     Indication: ANGINA PECTORIS
     Route: 048
  9. HERBESSER [Concomitant]
     Indication: ANGINA PECTORIS
     Route: 048
  10. GOODMIN [Concomitant]
     Indication: INSOMNIA
     Route: 048
  11. NITROPEN [Concomitant]
     Indication: ANGINA PECTORIS
     Dosage: AS REQUIRED
     Route: 060
  12. FRANDOL S [Concomitant]
     Indication: ANGINA PECTORIS
     Dosage: DOSE UNKNOWN, AS REQUIRED
     Route: 062

REACTIONS (1)
  - ANXIETY [None]
